FAERS Safety Report 16349187 (Version 3)
Quarter: 2019Q3

REPORT INFORMATION
  Report Type: Spontaneous
  Country: US (occurrence: US)
  Receive Date: 20190523
  Receipt Date: 20190718
  Transmission Date: 20191004
  Serious: Yes (Hospitalization, Other)
  Sender: FDA-Public Use
  Company Number: US-BOIRON INC.-2019BOR00058

PATIENT
  Sex: Female
  Weight: 71.2 kg

DRUGS (6)
  1. CALENDULA CREAM [Suspect]
     Active Substance: CALENDULA OFFICINALIS FLOWERING TOP
     Indication: RADIATION ASSOCIATED PAIN
     Dosage: UNK, 2X/DAY
     Route: 061
     Dates: start: 201904, end: 20190419
  2. CALENDULA CREAM [Suspect]
     Active Substance: CALENDULA OFFICINALIS FLOWERING TOP
     Indication: SKIN IRRITATION
  3. EXCEDRIN [Concomitant]
     Active Substance: ACETAMINOPHEN\ASPIRIN\CAFFEINE
     Dosage: UNK, AS NEEDED
  4. CALENDULA CREAM [Suspect]
     Active Substance: CALENDULA OFFICINALIS FLOWERING TOP
     Indication: PAIN OF SKIN
  5. MOTRIN [Concomitant]
     Active Substance: IBUPROFEN
     Dosage: UNK, AS NEEDED
  6. HYDROCODONE [Concomitant]
     Active Substance: HYDROCODONE

REACTIONS (11)
  - Musculoskeletal stiffness [Unknown]
  - Depression [Not Recovered/Not Resolved]
  - Scab [Recovering/Resolving]
  - Application site burn [Recovering/Resolving]
  - Skin ulcer [Recovering/Resolving]
  - Dysphagia [Unknown]
  - Pain [Unknown]
  - Fear [Not Recovered/Not Resolved]
  - Skin tightness [Unknown]
  - Suicidal ideation [Unknown]
  - Skin discolouration [Unknown]

NARRATIVE: CASE EVENT DATE: 2019
